FAERS Safety Report 13632275 (Version 2)
Quarter: 2017Q4

REPORT INFORMATION
  Report Type: Spontaneous
  Country: US (occurrence: US)
  Receive Date: 20170608
  Receipt Date: 20171204
  Transmission Date: 20180320
  Serious: No
  Sender: FDA-Public Use
  Company Number: US-BIOGEN-2017BI00412685

PATIENT
  Age: 56 Year
  Sex: Female

DRUGS (3)
  1. TECFIDERA [Suspect]
     Active Substance: DIMETHYL FUMARATE
     Indication: MULTIPLE SCLEROSIS
     Dosage: STARTING DOSE?TAKES 1 PILL PER DAY, THEN 2 PILL PER DAY OF 120 MG DOSE TEC AND ALTERNATES
     Route: 048
     Dates: start: 2017
  2. TECFIDERA [Suspect]
     Active Substance: DIMETHYL FUMARATE
     Route: 065
  3. TECFIDERA [Suspect]
     Active Substance: DIMETHYL FUMARATE
     Dosage: STARTING DOSE?TAKES 1 PILL PER DAY, THEN 2 PILL PER DAY OF 120 MG DOSE TEC AND ALTERNATES
     Route: 048
     Dates: start: 2017

REACTIONS (5)
  - Prescribed underdose [Recovered/Resolved]
  - Abdominal discomfort [Not Recovered/Not Resolved]
  - Abdominal pain [Not Recovered/Not Resolved]
  - Constipation [Not Recovered/Not Resolved]
  - Flushing [Not Recovered/Not Resolved]

NARRATIVE: CASE EVENT DATE: 2017
